FAERS Safety Report 20968136 (Version 1)
Quarter: 2022Q2

REPORT INFORMATION
  Report Type: Report from Study
  Country: CA (occurrence: CA)
  Receive Date: 20220616
  Receipt Date: 20220616
  Transmission Date: 20220721
  Serious: Yes (Other)
  Sender: FDA-Public Use
  Company Number: CA-NOVARTISPH-NVSC2021CA020279

PATIENT
  Age: 74 Year
  Sex: Male

DRUGS (1)
  1. MAYZENT [Suspect]
     Active Substance: SIPONIMOD
     Indication: Secondary progressive multiple sclerosis
     Dosage: UNK
     Route: 048
     Dates: start: 20201222

REACTIONS (11)
  - Blindness unilateral [Unknown]
  - Blood pressure increased [Unknown]
  - Visual impairment [Unknown]
  - Vision blurred [Unknown]
  - Eye pain [Unknown]
  - Dyspnoea [Unknown]
  - Blood pressure fluctuation [Unknown]
  - Migraine [Recovered/Resolved]
  - Aphasia [Recovered/Resolved]
  - Migraine [Recovered/Resolved]
  - Peripheral swelling [Unknown]

NARRATIVE: CASE EVENT DATE: 20210213
